FAERS Safety Report 5718038-0 (Version None)
Quarter: 2008Q2

REPORT INFORMATION
  Report Type: 
  Country: None (occurrence: None)
  Receive Date: 20080425
  Receipt Date: 20080423
  Transmission Date: 20081010
  Serious: Yes (Death, Other)
  Sender: FDA-Public Use
  Company Number: GL-RB-000921-08

PATIENT
  Age: 52 Year
  Sex: Male

DRUGS (2)
  1. SUBUTEX [Suspect]
     Route: 060
     Dates: start: 20040223, end: 20080322
  2. EFFEXOR [Concomitant]
     Indication: DEPRESSION
     Route: 048
     Dates: start: 20040401

REACTIONS (1)
  - MENINGITIS [None]
